FAERS Safety Report 9304376 (Version 1)
Quarter: 2013Q2

REPORT INFORMATION
  Report Type: Other
  Country: IT (occurrence: IT)
  Receive Date: 20130522
  Receipt Date: 20130522
  Transmission Date: 20140414
  Serious: Yes (Hospitalization)
  Sender: FDA-Public Use
  Company Number: IT-ACTAVIS-2013-09453

PATIENT
  Age: 45 Year
  Sex: Female

DRUGS (6)
  1. TRAMADOL HYDROCHLORIDE (UNKNOWN) [Suspect]
     Indication: PRODUCT USED FOR UNKNOWN INDICATION
     Dosage: 15 DF, SINGLE
     Route: 048
     Dates: start: 20130408, end: 20130408
  2. NOZINAN /00038601/ [Suspect]
     Indication: PRODUCT USED FOR UNKNOWN INDICATION
     Dosage: 15 UNK, UNK
     Route: 048
     Dates: start: 20130408, end: 20130408
  3. RIVOTRIL [Concomitant]
     Indication: PERSONALITY DISORDER
     Dosage: UNK, UNKNOWN
     Route: 065
  4. TRITTICO [Concomitant]
     Indication: PERSONALITY DISORDER
     Dosage: UNK, UNKNOWN
     Route: 065
  5. TAVOR                              /00273201/ [Concomitant]
     Indication: PRODUCT USED FOR UNKNOWN INDICATION
     Dosage: UNK, UNKNOWN
     Route: 065
  6. CITALOPRAM [Concomitant]
     Indication: PERSONALITY DISORDER
     Dosage: UNK, UNKNOWN
     Route: 065

REACTIONS (5)
  - Sopor [Recovered/Resolved]
  - Intentional self-injury [Recovered/Resolved]
  - Intentional drug misuse [Recovered/Resolved]
  - Overdose [Recovered/Resolved]
  - Grand mal convulsion [Recovered/Resolved]
